FAERS Safety Report 7970392-5 (Version None)
Quarter: 2011Q4

REPORT INFORMATION
  Report Type: 
  Country: None (occurrence: None)
  Receive Date: 20111212
  Receipt Date: 20111129
  Transmission Date: 20120403
  Serious: Yes (Other)
  Sender: FDA-Public Use
  Company Number: PHHY2011DE105161

PATIENT

DRUGS (1)
  1. FEMARA [Suspect]
     Route: 048

REACTIONS (2)
  - RENAL CELL CARCINOMA RECURRENT [None]
  - GENERAL PHYSICAL HEALTH DETERIORATION [None]
